FAERS Safety Report 6031272-8 (Version None)
Quarter: 2009Q1

REPORT INFORMATION
  Report Type: 
  Country: None (occurrence: None)
  Receive Date: 20090108
  Receipt Date: 20081231
  Transmission Date: 20090719
  Serious: Yes (Death)
  Sender: FDA-Public Use
  Company Number: US-BIOGENIDEC-2008BI035218

PATIENT
  Age: 42 Year
  Sex: Male
  Weight: 73 kg

DRUGS (6)
  1. AVONEX [Suspect]
     Indication: MULTIPLE SCLEROSIS
     Route: 030
     Dates: end: 20081203
  2. ZYPREXA [Concomitant]
     Indication: ANXIETY
     Route: 048
     Dates: start: 20081117, end: 20081203
  3. DIAZEPAM [Concomitant]
     Indication: MUSCLE SPASTICITY
     Route: 048
     Dates: start: 20081117, end: 20081203
  4. PROVIGIL [Concomitant]
     Indication: FATIGUE
     Route: 048
     Dates: start: 20031205, end: 20081203
  5. ZOLOFT [Concomitant]
     Indication: DEPRESSION
     Route: 048
     Dates: start: 20020808, end: 20081203
  6. RESTORIL [Concomitant]
     Indication: SLEEP DISORDER
     Route: 048
     Dates: start: 20020924, end: 20081203

REACTIONS (1)
  - DEATH [None]
